FAERS Safety Report 23344296 (Version 2)
Quarter: 2024Q1

REPORT INFORMATION
  Report Type: Spontaneous
  Country: US (occurrence: US)
  Receive Date: 20231228
  Receipt Date: 20240206
  Transmission Date: 20240410
  Serious: Yes (Other)
  Sender: FDA-Public Use
  Company Number: US-ABBVIE-5561697

PATIENT
  Age: 77 Year
  Sex: Female

DRUGS (1)
  1. REFRESH P.M. [Suspect]
     Active Substance: MINERAL OIL\PETROLATUM
     Indication: Product used for unknown indication
     Dosage: STRENGTH- MINERAL OIL 425MG/ML, WHITE PETROLATUM573 MG/ML PF OINTMENT
     Route: 047

REACTIONS (4)
  - Dry age-related macular degeneration [Unknown]
  - Erythema [Unknown]
  - Eye discharge [Unknown]
  - Superficial injury of eye [Unknown]

NARRATIVE: CASE EVENT DATE: 20240130
